FAERS Safety Report 6030413-6 (Version None)
Quarter: 2009Q1

REPORT INFORMATION
  Report Type: 
  Country: None (occurrence: None)
  Receive Date: 20090106
  Receipt Date: 20090106
  Transmission Date: 20090719
  Serious: Yes (Hospitalization)
  Sender: FDA-Public Use
  Company Number: None

PATIENT
  Age: 62 Year
  Sex: Male

DRUGS (2)
  1. CIPROFLOXACIN [Suspect]
     Indication: TRANSURETHRAL RESECTION SYNDROME
     Dosage: 500 MG BID PO
     Route: 048
     Dates: start: 20080311, end: 20080326
  2. SULFAMETHOXAZOLE AND TRIMETHOPRIM [Suspect]
     Indication: URINARY TRACT INFECTION
     Dosage: 800/160 MCG BID PO
     Route: 048
     Dates: start: 20080221, end: 20080228

REACTIONS (3)
  - CLOSTRIDIUM DIFFICILE COLITIS [None]
  - DEHYDRATION [None]
  - HYPOTENSION [None]
